FAERS Safety Report 25814241 (Version 1)
Quarter: 2025Q3

REPORT INFORMATION
  Report Type: Spontaneous
  Country: EU (occurrence: EU)
  Receive Date: 20250917
  Receipt Date: 20250917
  Transmission Date: 20251021
  Serious: Yes (Other)
  Sender: PFIZER
  Company Number: EU-PFIZER INC-PV202500109371

PATIENT
  Age: 51 Year
  Sex: Female
  Weight: 44 kg

DRUGS (15)
  1. ELRANATAMAB [Suspect]
     Active Substance: ELRANATAMAB
     Indication: Plasma cell myeloma
     Dates: start: 20250525, end: 20250525
  2. ELRANATAMAB [Suspect]
     Active Substance: ELRANATAMAB
     Dates: start: 20250602, end: 20250602
  3. ELRANATAMAB [Suspect]
     Active Substance: ELRANATAMAB
     Dates: start: 20250606, end: 20250606
  4. VALACYCLOVIR HYDROCHLORIDE [Concomitant]
     Active Substance: VALACYCLOVIR HYDROCHLORIDE
     Dosage: 500 MG, 2X/DAY (MORNING AND EVENING)
  5. BACTRIM [Concomitant]
     Active Substance: SULFAMETHOXAZOLE\TRIMETHOPRIM
  6. BACTRIM [Concomitant]
     Active Substance: SULFAMETHOXAZOLE\TRIMETHOPRIM
  7. MORPHINE SULFATE [Concomitant]
     Active Substance: MORPHINE SULFATE
  8. POLYETHYLENE GLYCOL 4000 [Concomitant]
     Active Substance: POLYETHYLENE GLYCOL 4000
  9. DOLIPRANE [Concomitant]
     Active Substance: ACETAMINOPHEN
  10. METOCLOPRAMIDE [Concomitant]
     Active Substance: METOCLOPRAMIDE
  11. FILGRASTIM [Concomitant]
     Active Substance: FILGRASTIM
     Dosage: 30 MIU, 1X/DAY
     Route: 058
  12. ERYTHROPOIETIN [Concomitant]
     Active Substance: ERYTHROPOIETIN
     Dosage: 30 MIU, 1X/DAY
     Route: 058
  13. ELTROMBOPAG OLAMINE [Concomitant]
     Active Substance: ELTROMBOPAG OLAMINE
     Dosage: 25 MG, 1X/DAY
  14. SODIUM BICARBONATE [Concomitant]
     Active Substance: SODIUM BICARBONATE
     Dosage: 250 ML, 1X/DAY (6 TIMES/DAY; 250 ML PER BOTTLE/DAY)
  15. ALPRAZOLAM [Concomitant]
     Active Substance: ALPRAZOLAM

REACTIONS (9)
  - Hypersensitivity vasculitis [Recovered/Resolved]
  - Cytokine release syndrome [Recovered/Resolved]
  - Back pain [Recovered/Resolved]
  - Lymphopenia [Unknown]
  - Pyrexia [Recovered/Resolved]
  - Fatigue [Unknown]
  - Depression [Unknown]
  - Dry skin [Unknown]
  - Pruritus [Recovered/Resolved]

NARRATIVE: CASE EVENT DATE: 20250101
